FAERS Safety Report 17526945 (Version 2)
Quarter: 2020Q1

REPORT INFORMATION
  Report Type: Spontaneous
  Country: BR (occurrence: BR)
  Receive Date: 20200311
  Receipt Date: 20200319
  Transmission Date: 20200409
  Serious: Yes (Hospitalization, Other)
  Sender: FDA-Public Use
  Company Number: BR-JNJFOC-20200300986

PATIENT
  Age: 57 Year
  Sex: Male

DRUGS (3)
  1. XARELTO [Suspect]
     Active Substance: RIVAROXABAN
     Indication: THROMBOSIS PROPHYLAXIS
     Dosage: 20 MG
     Route: 048
     Dates: start: 2015
  2. TENAVIT [Concomitant]
     Indication: BLOOD HOMOCYSTEINE ABNORMAL
     Dosage: UNK UNK, QOD
  3. ROSUVASTATIN. [Concomitant]
     Active Substance: ROSUVASTATIN
     Indication: BLOOD HOMOCYSTEINE ABNORMAL

REACTIONS (2)
  - Pulmonary embolism [Unknown]
  - Transient ischaemic attack [Unknown]

NARRATIVE: CASE EVENT DATE: 20200227
